APPROVED DRUG PRODUCT: DESMOPRESSIN ACETATE
Active Ingredient: DESMOPRESSIN ACETATE
Strength: 0.004MG/ML
Dosage Form/Route: INJECTABLE;INJECTION
Application: A204695 | Product #001 | TE Code: AP
Applicant: SAGENT PHARMACEUTICALS INC
Approved: Aug 22, 2017 | RLD: No | RS: No | Type: RX